FAERS Safety Report 10527836 (Version 2)
Quarter: 2014Q4

REPORT INFORMATION
  Report Type: Spontaneous
  Country: GB (occurrence: GB)
  Receive Date: 20141020
  Receipt Date: 20141118
  Transmission Date: 20150528
  Serious: Yes (Other)
  Sender: FDA-Public Use
  Company Number: GB-SA-2014SA139426

PATIENT

DRUGS (1)
  1. RASBURICASE [Suspect]
     Active Substance: RASBURICASE
     Route: 065

REACTIONS (1)
  - Tumour lysis syndrome [Unknown]
